FAERS Safety Report 7539679-4 (Version None)
Quarter: 2011Q2

REPORT INFORMATION
  Report Type: 
  Country: None (occurrence: None)
  Receive Date: 20110610
  Receipt Date: 20110602
  Transmission Date: 20111010
  Serious: Yes (Hospitalization)
  Sender: FDA-Public Use
  Company Number: US-ASTRAZENECA-2011SE34201

PATIENT
  Age: 62 Year
  Sex: Male
  Weight: 67.5 kg

DRUGS (8)
  1. TEMOZOLOMIDE [Suspect]
     Indication: GLIOBLASTOMA
     Route: 048
     Dates: start: 20110531, end: 20110531
  2. VANDETANIB [Suspect]
     Indication: GLIOBLASTOMA
     Route: 048
     Dates: start: 20110525, end: 20110531
  3. OMEPRAZOLE [Concomitant]
  4. ONDASETRON HCL [Concomitant]
  5. COLACE [Concomitant]
  6. BACTRIM DS [Concomitant]
  7. RADIATION THERAPY [Suspect]
     Indication: GLIOBLASTOMA
     Route: 065
     Dates: start: 20110531
  8. DEXAMETHASONE [Concomitant]

REACTIONS (1)
  - WOUND COMPLICATION [None]
